FAERS Safety Report 12310322 (Version 1)
Quarter: 2016Q2

REPORT INFORMATION
  Report Type: Spontaneous
  Country: US (occurrence: None)
  Receive Date: 20160426
  Receipt Date: 20160426
  Transmission Date: 20160815
  Serious: No
  Sender: FDA-Public Use
  Company Number: None

PATIENT
  Age: 44 Year
  Sex: Female
  Weight: 59.42 kg

DRUGS (7)
  1. VITAMIN D3 [Concomitant]
     Active Substance: CHOLECALCIFEROL
  2. MULTI  B [Concomitant]
  3. FISH OIL [Concomitant]
     Active Substance: FISH OIL
  4. CRANBERRY. [Concomitant]
     Active Substance: CRANBERRY
  5. MIRENA [Suspect]
     Active Substance: LEVONORGESTREL
  6. VITAMIN C [Concomitant]
     Active Substance: ASCORBIC ACID
  7. MAGNESIUM [Concomitant]
     Active Substance: MAGNESIUM

REACTIONS (8)
  - Nausea [None]
  - Dizziness [None]
  - Abdominal pain [None]
  - Acne [None]
  - Diarrhoea [None]
  - Weight increased [None]
  - Abdominal tenderness [None]
  - Fatigue [None]

NARRATIVE: CASE EVENT DATE: 20160416
